FAERS Safety Report 10358239 (Version 1)
Quarter: 2014Q3

REPORT INFORMATION
  Report Type: Spontaneous
  Country: US (occurrence: None)
  Receive Date: 20140730
  Receipt Date: 20140730
  Transmission Date: 20150326
  Serious: Yes (Other)
  Sender: FDA-Public Use
  Company Number: UNT-2014-004396

PATIENT
  Age: 24 Year
  Sex: Male
  Weight: 126.5 kg

DRUGS (3)
  1. LETAIRIS [Concomitant]
     Active Substance: AMBRISENTAN
  2. TYVASO [Suspect]
     Active Substance: TREPROSTINIL
     Indication: PULMONARY ARTERIAL HYPERTENSION
     Route: 055
     Dates: start: 20110330
  3. ADCIRCA [Concomitant]
     Active Substance: TADALAFIL

REACTIONS (2)
  - Convulsion [None]
  - Syncope [None]

NARRATIVE: CASE EVENT DATE: 20140704
